FAERS Safety Report 19186524 (Version 1)
Quarter: 2021Q2

REPORT INFORMATION
  Report Type: Spontaneous
  Country: US (occurrence: US)
  Receive Date: 20210428
  Receipt Date: 20210428
  Transmission Date: 20210717
  Serious: No
  Sender: FDA-Public Use
  Company Number: US-DRREDDYS-USA/USA/21/0134810

PATIENT
  Age: 76 Year
  Sex: Male
  Weight: 71.55 kg

DRUGS (3)
  1. OMEPRAZOLE DELAYED RELEASE CAPSULES 20 MG [Suspect]
     Active Substance: OMEPRAZOLE
     Indication: NAUSEA
     Dosage: ONCE A DAY IN THE MORNING BEFORE EATING
     Route: 048
     Dates: start: 20210416
  2. OMEPRAZOLE DELAYED RELEASE CAPSULES 20 MG [Suspect]
     Active Substance: OMEPRAZOLE
     Indication: ANXIETY
  3. OMEPRAZOLE DELAYED RELEASE CAPSULES 20 MG [Suspect]
     Active Substance: OMEPRAZOLE
     Indication: NERVOUSNESS

REACTIONS (1)
  - Product use in unapproved indication [Unknown]
